FAERS Safety Report 10100081 (Version 1)
Quarter: 2014Q2

REPORT INFORMATION
  Report Type: Report from Study
  Country: US (occurrence: US)
  Receive Date: 20140423
  Receipt Date: 20140423
  Transmission Date: 20141212
  Serious: Yes (Other)
  Sender: FDA-Public Use
  Company Number: PHEH2014US007997

PATIENT
  Sex: Female

DRUGS (2)
  1. GILENYA [Suspect]
     Dosage: UNK
     Route: 048
  2. GILENYA [Suspect]
     Route: 048
     Dates: start: 20140205

REACTIONS (1)
  - Hepatomegaly [Recovered/Resolved]
